FAERS Safety Report 10476780 (Version 3)
Quarter: 2014Q4

REPORT INFORMATION
  Report Type: Spontaneous
  Country: US (occurrence: US)
  Receive Date: 20140925
  Receipt Date: 20141023
  Transmission Date: 20150528
  Serious: No
  Sender: FDA-Public Use
  Company Number: US-009507513-1409USA006456

PATIENT
  Age: 89 Year
  Sex: Male
  Weight: 88.44 kg

DRUGS (15)
  1. ISORDIL [Concomitant]
     Active Substance: ISOSORBIDE DINITRATE
  2. UBIDECARENONE [Concomitant]
     Active Substance: UBIDECARENONE
  3. JANUVIA [Suspect]
     Active Substance: SITAGLIPTIN PHOSPHATE
     Dosage: 100 MG, ONCE DAILY (IN THE MORNING)
     Route: 048
     Dates: start: 2014
  4. ASPIRIN. [Concomitant]
     Active Substance: ASPIRIN
  5. JANUVIA [Suspect]
     Active Substance: SITAGLIPTIN PHOSPHATE
     Indication: TYPE 2 DIABETES MELLITUS
     Dosage: 100 MG, ONCE DAILY (IN THE MORNING)
     Route: 048
     Dates: start: 2009, end: 2014
  6. CITRACAL [Concomitant]
     Active Substance: CALCIUM CITRATE
  7. ESTER-C [Concomitant]
     Active Substance: CALCIUM\VITAMINS
  8. METOPROLOL [Concomitant]
     Active Substance: METOPROLOL
  9. NORVASC [Concomitant]
     Active Substance: AMLODIPINE BESYLATE
  10. CHOLECALCIFEROL [Concomitant]
     Active Substance: CHOLECALCIFEROL
  11. NITRO-DUR [Concomitant]
     Active Substance: NITROGLYCERIN
  12. JANUVIA [Suspect]
     Active Substance: SITAGLIPTIN PHOSPHATE
     Indication: DIABETES MELLITUS
     Dosage: 100 MG, ONCE DAILY (IN THE MORNING)
     Route: 048
     Dates: start: 2006, end: 201407
  13. SELENIUM (UNSPECIFIED) [Concomitant]
  14. CENTRUM SILVER [Concomitant]
     Active Substance: VITAMINS
  15. ZOCOR [Concomitant]
     Active Substance: SIMVASTATIN
     Route: 048

REACTIONS (1)
  - Blood glucose increased [Recovered/Resolved]

NARRATIVE: CASE EVENT DATE: 201407
